FAERS Safety Report 6891672-0 (Version None)
Quarter: 2010Q3

REPORT INFORMATION
  Report Type: 
  Country: None (occurrence: None)
  Receive Date: 20100731
  Receipt Date: 20070905
  Transmission Date: 20110219
  Serious: Yes (Other)
  Sender: FDA-Public Use
  Company Number: US-PFIZER INC-2007075167

PATIENT

DRUGS (2)
  1. NEURONTIN [Suspect]
     Indication: BACK PAIN
     Dates: start: 20061201
  2. NEURONTIN [Suspect]
     Indication: NECK PAIN

REACTIONS (1)
  - GASTROINTESTINAL INFLAMMATION [None]
